FAERS Safety Report 5005926-6 (Version None)
Quarter: 2006Q2

REPORT INFORMATION
  Report Type: 
  Country: None (occurrence: None)
  Receive Date: 20060517
  Receipt Date: 20060517
  Transmission Date: 20061013
  Serious: Yes (Hospitalization)
  Sender: FDA-Public Use
  Company Number: None

PATIENT
  Age: 74 Year
  Sex: Male

DRUGS (1)
  1. COUMADIN [Suspect]
     Indication: DEEP VEIN THROMBOSIS
     Dosage: 7.5 M G ON WED, 5MG OTHER DAYS
     Dates: start: 20060310, end: 20060323

REACTIONS (10)
  - BLOOD ALBUMIN DECREASED [None]
  - CONTUSION [None]
  - DIZZINESS [None]
  - GINGIVAL BLEEDING [None]
  - INTERNATIONAL NORMALISED RATIO INCREASED [None]
  - ORAL MUCOSAL DISORDER [None]
  - POST PROCEDURAL COMPLICATION [None]
  - POST PROCEDURAL HAEMATOMA [None]
  - TONGUE DISORDER [None]
  - VOMITING [None]
